FAERS Safety Report 13792985 (Version 1)
Quarter: 2017Q3

REPORT INFORMATION
  Report Type: Spontaneous
  Country: US (occurrence: US)
  Receive Date: 20170726
  Receipt Date: 20170726
  Transmission Date: 20171127
  Serious: Yes (Hospitalization, Disabling)
  Sender: FDA-Public Use
  Company Number: None

PATIENT
  Age: 25 Year
  Sex: Female
  Weight: 56.25 kg

DRUGS (2)
  1. MAGNESIUM [Concomitant]
     Active Substance: MAGNESIUM
  2. CIPROFLAXEN [Suspect]
     Active Substance: CIPROFLOXACIN
     Indication: EAR INFECTION
     Route: 048
     Dates: start: 20170719, end: 20170720

REACTIONS (4)
  - Gait disturbance [None]
  - Dysstasia [None]
  - Arthralgia [None]
  - Asthenia [None]

NARRATIVE: CASE EVENT DATE: 20170719
